FAERS Safety Report 24148669 (Version 3)
Quarter: 2024Q4

REPORT INFORMATION
  Report Type: Spontaneous
  Country: ES (occurrence: ES)
  Receive Date: 20240729
  Receipt Date: 20241023
  Transmission Date: 20250115
  Serious: Yes (Other)
  Sender: PFIZER
  Company Number: ES-PFIZER INC-PV202400096158

PATIENT
  Age: 27 Year
  Sex: Male

DRUGS (6)
  1. BRENTUXIMAB VEDOTIN [Suspect]
     Active Substance: BRENTUXIMAB VEDOTIN
     Indication: Hodgkin^s disease
     Dosage: 1.2 MG/KG OF BODYWEIGHT, CYCLIC (120MG IN EACH CYCLE)
     Route: 042
     Dates: start: 202007
  2. BRENTUXIMAB VEDOTIN [Suspect]
     Active Substance: BRENTUXIMAB VEDOTIN
     Dosage: 1.2 MG/KG OF BODYWEIGHT, CYCLIC (120MG IN EACH CYCLE)
     Route: 042
  3. BRENTUXIMAB VEDOTIN [Suspect]
     Active Substance: BRENTUXIMAB VEDOTIN
     Dosage: 1.2 MG/KG OF BODYWEIGHT, CYCLIC (120MG IN EACH CYCLE)
     Route: 042
     Dates: start: 20200911
  4. DOXORUBICIN HYDROCHLORIDE [Suspect]
     Active Substance: DOXORUBICIN HYDROCHLORIDE
     Indication: Hodgkin^s disease
     Dosage: 25 MG/M2 OF BODY SURFACE AREA, CYCLIC
     Route: 042
     Dates: start: 202007
  5. VINBLASTINE [Suspect]
     Active Substance: VINBLASTINE
     Indication: Hodgkin^s disease
     Dosage: 6 MG/M2, CYCLIC
     Route: 042
     Dates: start: 202007
  6. DACARBAZINE [Suspect]
     Active Substance: DACARBAZINE
     Indication: Hodgkin^s disease
     Dosage: 375 MG/M2, DAYS 1 AND 15 OF EACH 28-DAY CYCLE
     Route: 042
     Dates: start: 202007

REACTIONS (2)
  - Nervous system disorder [Recovered/Resolved]
  - Neuropathy peripheral [Recovered/Resolved]

NARRATIVE: CASE EVENT DATE: 20200901
